FAERS Safety Report 9283888 (Version 1)
Quarter: 2013Q2

REPORT INFORMATION
  Report Type: Spontaneous
  Country: AU (occurrence: AU)
  Receive Date: 20130510
  Receipt Date: 20130510
  Transmission Date: 20140414
  Serious: Yes (Death, Other)
  Sender: FDA-Public Use
  Company Number: PHHY2013AU045887

PATIENT
  Sex: 0

DRUGS (2)
  1. GLIVEC [Suspect]
     Dosage: UNK UKN, UNK
     Route: 048
  2. PARACETAMOL [Suspect]
     Dosage: UNK UKN, UNK

REACTIONS (2)
  - Death [Fatal]
  - Platelet count decreased [Unknown]
